FAERS Safety Report 18698004 (Version 4)
Quarter: 2022Q4

REPORT INFORMATION
  Report Type: Spontaneous
  Country: US (occurrence: US)
  Receive Date: 20210104
  Receipt Date: 20221103
  Transmission Date: 20230112
  Serious: Yes (Other)
  Sender: FDA-Public Use
  Company Number: US-PFIZER INC-2020513301

PATIENT
  Age: 22 Year
  Sex: Male

DRUGS (3)
  1. BENEFIX [Suspect]
     Active Substance: COAGULATION FACTOR IX RECOMBINANT HUMAN\ISOPROPYL ALCOHOL
     Indication: Factor IX deficiency
     Dosage: 7000 IU (+/-10%) ONCE DAILY AS NEEDED
     Route: 042
     Dates: start: 202001
  2. BENEFIX [Suspect]
     Active Substance: COAGULATION FACTOR IX RECOMBINANT HUMAN\ISOPROPYL ALCOHOL
     Dosage: 3000 UNIT|INFUSE ~ 7000 UNITS (+/-10% ) DAILY AS NEEDED
     Route: 042
  3. TYLENOL [Concomitant]
     Active Substance: ACETAMINOPHEN
     Dosage: UNK

REACTIONS (2)
  - Haemorrhage [Recovered/Resolved]
  - Haemarthrosis [Unknown]

NARRATIVE: CASE EVENT DATE: 20201101
